FAERS Safety Report 8974422 (Version 2)
Quarter: 2013Q2

REPORT INFORMATION
  Report Type: Spontaneous
  Country: US (occurrence: None)
  Receive Date: 20120508
  Receipt Date: 20121107
  Transmission Date: 20140414
  Serious: Yes (Other)
  Sender: FDA-Public Use
  Company Number: 2012HGS-003250

PATIENT
  Age: 53 Year
  Sex: Female
  Weight: 107.05 kg

DRUGS (19)
  1. BENLYSTA [Suspect]
     Indication: SYSTEMIC LUPUS ERYTHEMATOSUS
     Dosage: 1 IN 28 D, INTRAVENOUS DRIP
     Route: 041
     Dates: start: 20121214
  2. PLAQUENIL (HYDROXYCHLOROQUINE) [Concomitant]
  3. PREDNISONE (PREDNISONE) [Concomitant]
  4. METHOTREXATE (METHOTREXATE) [Concomitant]
  5. COMPAZINE (PROCHLORPERAZINE EDISYLATE) [Concomitant]
  6. LEUKOVORIN (CALCIUM FOLINATE) [Concomitant]
  7. LYRICA (PREGABALIN) [Concomitant]
  8. LOVENOX (ENOXAPARIN SODIUM) [Concomitant]
  9. NEXIUM (ESOMEPRAZOLE SODIUM) [Concomitant]
  10. FLEXERIL (CYCLOBENZAPRINE HYDROCHLORIDE) [Concomitant]
  11. TRAZODONE (TRAZODONE HYDROCHLORIDE) [Concomitant]
  12. NORCO (VICODIN) (PARACETAMOL, HYDROCODONE BITARTRATE) [Concomitant]
  13. MEGACE (MEGESTROL ACETATE) [Concomitant]
  14. CYMBALTA (DULOXETINE HYDROCHLORIDE) [Concomitant]
  15. TOPROL (METOPROLOL SUCCINATE) [Concomitant]
  16. VITAMINS (KAPSOVIT) (ERGOCALCIFEROL, ASCORBIC ACID, THIAMINE HYDROCHLORIDE, RETINOL, RIBOFLAVIN, NICOTINAMIDE) [Concomitant]
  17. IRON (FERROUS SULFATE) [Concomitant]
  18. NITROFURANTOIN (NITROFURANTOIN) [Concomitant]
  19. ZOFRAN (ONDANSETRON HYDROCHLORIDE) [Concomitant]

REACTIONS (3)
  - Fatigue [None]
  - Cystitis [None]
  - Nausea [None]
